FAERS Safety Report 7470750-1 (Version None)
Quarter: 2011Q2

REPORT INFORMATION
  Report Type: 
  Country: None (occurrence: None)
  Receive Date: 20110510
  Receipt Date: 20110502
  Transmission Date: 20111010
  Serious: Yes (Hospitalization)
  Sender: FDA-Public Use
  Company Number: PHEH2009US14014

PATIENT
  Sex: Female

DRUGS (2)
  1. GLEEVEC [Suspect]
     Indication: CHRONIC MYELOID LEUKAEMIA
     Dosage: 400 MG, DAILY
     Route: 048
     Dates: start: 20090914
  2. GLEEVEC [Suspect]
     Dosage: 400 MG, DAILY
     Route: 048
     Dates: start: 20091012

REACTIONS (8)
  - MYALGIA [None]
  - DIARRHOEA [None]
  - NAUSEA [None]
  - EYELID OEDEMA [None]
  - MUSCLE SPASMS [None]
  - VOMITING [None]
  - CARDIAC DISORDER [None]
  - DIZZINESS [None]
